FAERS Safety Report 4933210-5 (Version None)
Quarter: 2006Q1

REPORT INFORMATION
  Report Type: 
  Country: None (occurrence: None)
  Receive Date: 20060106
  Receipt Date: 20050831
  Transmission Date: 20060701
  Serious: No
  Sender: FDA-Public Use
  Company Number: 200511803BWH

PATIENT
  Age: 73 Year
  Sex: Male

DRUGS (1)
  1. LEVITRA [Suspect]
     Dosage: ORAL
     Route: 048

REACTIONS (2)
  - ANORGASMIA [None]
  - DRUG EFFECT DECREASED [None]
